FAERS Safety Report 7241705-7 (Version None)
Quarter: 2011Q1

REPORT INFORMATION
  Report Type: 
  Country: None (occurrence: None)
  Receive Date: 20110124
  Receipt Date: 20110119
  Transmission Date: 20110831
  Serious: Yes (Life-Threatening, Hospitalization, Other)
  Sender: FDA-Public Use
  Company Number: PHHY2011ES04443

PATIENT
  Age: 72 Year
  Sex: Male

DRUGS (6)
  1. PARACETAMOL [Interacting]
     Dosage: UNK
  2. CLOPIDOGREL [Interacting]
     Indication: CARDIOVASCULAR EVENT PROPHYLAXIS
     Dosage: 75 MG, QD
     Route: 048
     Dates: start: 20070501, end: 20090115
  3. IBUPROFEN [Interacting]
     Indication: PAIN
     Dosage: 600 MG, QD
     Route: 048
     Dates: end: 20090112
  4. METAMIZOL [Interacting]
     Indication: PAIN
     Dosage: UNK
     Dates: end: 20090115
  5. VOLTAREN [Suspect]
     Indication: PAIN
     Dosage: 75 MG, QD
     Route: 048
     Dates: end: 20090115
  6. SIMVASTATIN [Interacting]
     Dosage: UNK

REACTIONS (9)
  - DUODENAL ULCER HAEMORRHAGE [None]
  - GASTRIC PERFORATION [None]
  - LOSS OF CONSCIOUSNESS [None]
  - URINARY TRACT INFECTION [None]
  - DRUG INTERACTION [None]
  - DUODENITIS [None]
  - DECUBITUS ULCER [None]
  - GASTROINTESTINAL PERFORATION [None]
  - GASTROINTESTINAL HAEMORRHAGE [None]
